FAERS Safety Report 7806406-2 (Version None)
Quarter: 2011Q4

REPORT INFORMATION
  Report Type: 
  Country: None (occurrence: None)
  Receive Date: 20111011
  Receipt Date: 20111004
  Transmission Date: 20120403
  Serious: Yes (Life-Threatening, Other)
  Sender: FDA-Public Use
  Company Number: FR-BRISTOL-MYERS SQUIBB COMPANY-16133902

PATIENT
  Age: 64 Year
  Sex: Male

DRUGS (7)
  1. REYATAZ [Interacting]
     Indication: HIV INFECTION
     Route: 048
     Dates: end: 20110818
  2. TEGRETOL [Suspect]
     Indication: EPILEPSY
     Route: 048
     Dates: start: 20090101, end: 20110921
  3. KEPPRA [Concomitant]
     Dates: start: 20090101
  4. TRUVADA [Suspect]
     Indication: HIV INFECTION
     Route: 048
     Dates: end: 20110818
  5. CARBOPLATIN [Suspect]
     Indication: SQUAMOUS CELL CARCINOMA
     Dosage: CYCLE 2: 11AUG11
     Route: 042
     Dates: start: 20110721
  6. NORVIR [Interacting]
     Indication: HIV INFECTION
     Route: 048
     Dates: end: 20110818
  7. DOCETAXEL [Interacting]
     Indication: SQUAMOUS CELL CARCINOMA
     Dosage: ALSO TAKEN AS CONMED FROM 21JUL11 75MG/M2 IV
     Dates: start: 20110721, end: 20110811

REACTIONS (4)
  - DERMATITIS BULLOUS [None]
  - NEUTROPENIA [None]
  - DRUG INTERACTION [None]
  - SKIN EXFOLIATION [None]
